FAERS Safety Report 8115160-9 (Version None)
Quarter: 2012Q1

REPORT INFORMATION
  Report Type: 
  Country: None (occurrence: None)
  Receive Date: 20120206
  Receipt Date: 20120202
  Transmission Date: 20120608
  Serious: Yes (Death)
  Sender: FDA-Public Use
  Company Number: FR-PFIZER INC-2011171671

PATIENT
  Age: 5 Month
  Sex: Female

DRUGS (10)
  1. PROPRANOLOL [Suspect]
     Dosage: 6 MG, 2X/DAY
     Route: 048
     Dates: start: 20110616, end: 20110622
  2. SUCCINYLCHOLINE CHLORIDE [Suspect]
     Dosage: 30 MG, UNK
     Dates: start: 20110622, end: 20110622
  3. AETOXISCLEROL [Suspect]
     Indication: VARICES OESOPHAGEAL
     Dosage: UNK
     Route: 042
     Dates: start: 20110622, end: 20110622
  4. DIPRIVAN [Suspect]
     Dosage: 30 MG, UNK
     Dates: start: 20110622, end: 20110622
  5. ALBUMINE ^LFB^ [Suspect]
     Dosage: UNK
     Route: 042
     Dates: start: 20110531
  6. ALDACTONE [Suspect]
     Dosage: UNK
     Dates: start: 20110531
  7. SANDOSTATIN [Suspect]
     Dosage: UNK
     Dates: start: 20110622, end: 20110622
  8. SEVOFLURANE [Suspect]
     Dosage: UNK
     Dates: start: 20110622, end: 20110622
  9. SUFENTANIL CITRATE [Suspect]
     Dosage: UNK
     Dates: start: 20110622, end: 20110622
  10. PROPRANOLOL [Suspect]
     Indication: HAEMANGIOMA OF SKIN
     Dosage: 3 MG, 2X/DAY
     Route: 048
     Dates: start: 20110609, end: 20110616

REACTIONS (2)
  - ATRIOVENTRICULAR BLOCK [None]
  - CARDIAC ARREST [None]
